FAERS Safety Report 22612929 (Version 2)
Quarter: 2023Q2

REPORT INFORMATION
  Report Type: Spontaneous
  Country: US (occurrence: US)
  Receive Date: 20230618
  Receipt Date: 20230618
  Transmission Date: 20230721
  Serious: Yes (Hospitalization, Other)
  Sender: FDA-Public Use
  Company Number: US-drreddys-SPO/USA/23/0166983

PATIENT
  Sex: Female

DRUGS (3)
  1. TACROLIMUS [Suspect]
     Active Substance: TACROLIMUS
     Indication: Immunosuppressant drug therapy
  2. PREDNISONE [Suspect]
     Active Substance: PREDNISONE
     Indication: Immunosuppressant drug therapy
  3. MYCOPHENOLATE MOFETIL [Suspect]
     Active Substance: MYCOPHENOLATE MOFETIL
     Indication: Immunosuppressant drug therapy

REACTIONS (7)
  - COVID-19 [Recovered/Resolved]
  - Ear infection bacterial [Recovered/Resolved]
  - Upper respiratory tract infection bacterial [Recovered/Resolved]
  - Gastroenteritis rotavirus [Recovered/Resolved]
  - Pneumonia bacterial [Recovered/Resolved]
  - Respiratory syncytial virus infection [Recovered/Resolved]
  - Clostridium difficile colitis [Recovered/Resolved]
